FAERS Safety Report 4963954-0 (Version None)
Quarter: 2006Q2

REPORT INFORMATION
  Report Type: 
  Country: None (occurrence: None)
  Receive Date: 20060405
  Receipt Date: 20060329
  Transmission Date: 20061013
  Serious: Yes (Death, Disabling)
  Sender: FDA-Public Use
  Company Number: US-MERCK-0603USA04528

PATIENT
  Age: 81 Year
  Sex: Female

DRUGS (1)
  1. VIOXX [Suspect]
     Route: 048
     Dates: start: 20010101, end: 20020414

REACTIONS (1)
  - CEREBROVASCULAR ACCIDENT [None]
